FAERS Safety Report 23398367 (Version 2)
Quarter: 2024Q1

REPORT INFORMATION
  Report Type: Spontaneous
  Country: JP (occurrence: JP)
  Receive Date: 20240112
  Receipt Date: 20240122
  Transmission Date: 20240409
  Serious: Yes (Other)
  Sender: FDA-Public Use
  Company Number: JP-BoehringerIngelheim-2024-BI-001366

PATIENT
  Age: 78 Year
  Sex: Male

DRUGS (8)
  1. GILOTRIF [Suspect]
     Active Substance: AFATINIB
     Indication: Non-small cell lung cancer
     Route: 065
  2. GILOTRIF [Suspect]
     Active Substance: AFATINIB
     Indication: EGFR gene mutation
  3. OSIMERTINIB [Suspect]
     Active Substance: OSIMERTINIB
     Indication: Product used for unknown indication
     Route: 065
  4. OSIMERTINIB [Suspect]
     Active Substance: OSIMERTINIB
     Route: 065
  5. OSIMERTINIB [Suspect]
     Active Substance: OSIMERTINIB
     Route: 065
  6. OSIMERTINIB [Suspect]
     Active Substance: OSIMERTINIB
     Route: 065
  7. GEFITINIB [Concomitant]
     Active Substance: GEFITINIB
     Indication: Non-small cell lung cancer
     Route: 065
  8. GEFITINIB [Concomitant]
     Active Substance: GEFITINIB
     Indication: EGFR gene mutation

REACTIONS (2)
  - Malignant neoplasm progression [Recovered/Resolved]
  - Fatigue [Recovered/Resolved]
